FAERS Safety Report 20973486 (Version 1)
Quarter: 2022Q2

REPORT INFORMATION
  Report Type: Spontaneous
  Country: US (occurrence: US)
  Receive Date: 20220617
  Receipt Date: 20220617
  Transmission Date: 20220721
  Serious: Yes (Other)
  Sender: FDA-Public Use
  Company Number: US-CELGENE-USA-20220304341

PATIENT
  Age: 81 Year
  Sex: Male

DRUGS (2)
  1. REVLIMID [Suspect]
     Active Substance: LENALIDOMIDE
     Indication: Plasma cell myeloma
     Dosage: 6.6667 MILLIGRAM
     Route: 048
     Dates: start: 20220207
  2. REVLIMID [Suspect]
     Active Substance: LENALIDOMIDE
     Dosage: 1 CAPSULE BY MOUTH DAILY FOR 2 WEEKS ON FOLLOWED BY 1 WEEK OFF
     Route: 048

REACTIONS (1)
  - Thrombocytopenia [Unknown]
